FAERS Safety Report 25529342 (Version 1)
Quarter: 2025Q3

REPORT INFORMATION
  Report Type: Spontaneous
  Country: US (occurrence: None)
  Receive Date: 20250707
  Receipt Date: 20250707
  Transmission Date: 20251020
  Serious: No
  Sender: FDA-CTU
  Company Number: None

PATIENT
  Age: 41 Year
  Sex: Female
  Weight: 62.1 kg

DRUGS (1)
  1. ACETAMINOPHEN AND CODEINE [Suspect]
     Active Substance: ACETAMINOPHEN\CODEINE PHOSPHATE

REACTIONS (5)
  - Musculoskeletal chest pain [None]
  - Hyperventilation [None]
  - Cardiovascular insufficiency [None]
  - Feeling hot [None]
  - Nausea [None]

NARRATIVE: CASE EVENT DATE: 20250703
